FAERS Safety Report 7134193-2 (Version None)
Quarter: 2010Q4

REPORT INFORMATION
  Report Type: 
  Country: None (occurrence: None)
  Receive Date: 20101117
  Receipt Date: 20101109
  Transmission Date: 20110411
  Serious: Yes (Other)
  Sender: FDA-Public Use
  Company Number: 2010MA004397

PATIENT
  Age: 39 Year
  Sex: Male

DRUGS (3)
  1. MIRTAZAPINE [Suspect]
     Indication: DEPRESSION
     Dosage: 30 MG;PO
     Route: 048
     Dates: start: 20100806, end: 20100925
  2. FLUOXETINE [Concomitant]
  3. PREV MEDS [Concomitant]

REACTIONS (1)
  - MUSCLE SPASMS [None]
